FAERS Safety Report 8560719-8 (Version None)
Quarter: 2012Q3

REPORT INFORMATION
  Report Type: 
  Country: None (occurrence: None)
  Receive Date: 20120802
  Receipt Date: 20120730
  Transmission Date: 20120928
  Serious: Yes (Other)
  Sender: FDA-Public Use
  Company Number: PHEH2012US014846

PATIENT
  Sex: Female

DRUGS (3)
  1. VIVELLE-DOT [Suspect]
     Indication: MENOPAUSE
     Dosage: 0.05 MG, Q72H
     Route: 062
  2. ASPIRIN [Concomitant]
     Dosage: 500 MG, PRN
  3. TYLENOL (CAPLET) [Concomitant]
     Dosage: 500 MG, PRN

REACTIONS (16)
  - MALAISE [None]
  - INSOMNIA [None]
  - ASTHENIA [None]
  - DECREASED APPETITE [None]
  - TINNITUS [None]
  - WEIGHT DECREASED [None]
  - COGNITIVE DISORDER [None]
  - MUSCLE TWITCHING [None]
  - DYSPEPSIA [None]
  - BLOOD PRESSURE DECREASED [None]
  - DEPRESSION [None]
  - HEADACHE [None]
  - MEMORY IMPAIRMENT [None]
  - FATIGUE [None]
  - TREMOR [None]
  - NAUSEA [None]
